FAERS Safety Report 8926287 (Version 1)
Quarter: 2012Q4

REPORT INFORMATION
  Report Type: 
  Country: AU (occurrence: AU)
  Receive Date: 20121126
  Receipt Date: 20121126
  Transmission Date: 20130627
  Serious: Yes (Death)
  Sender: FDA-Public Use
  Company Number: PHHO2012AU016781

PATIENT
  Age: 60 Year
  Sex: Male

DRUGS (1)
  1. CLOZARIL [Suspect]
     Dosage: 600 mg, UNK
     Dates: start: 20000107, end: 20121106

REACTIONS (3)
  - Cardiac arrest [Fatal]
  - White blood cell count increased [Unknown]
  - Neutrophil count increased [Unknown]
